FAERS Safety Report 5607978-9 (Version None)
Quarter: 2008Q1

REPORT INFORMATION
  Report Type: 
  Country: None (occurrence: None)
  Receive Date: 20080130
  Receipt Date: 20080123
  Transmission Date: 20080703
  Serious: Yes (Congenital Anomaly)
  Sender: FDA-Public Use
  Company Number: A0706173A

PATIENT
  Sex: Male
  Weight: 2.8 kg

DRUGS (5)
  1. ABACAVIR [Suspect]
     Indication: DRUG USE FOR UNKNOWN INDICATION
     Dosage: 300MG TWICE PER DAY
     Dates: start: 20070519
  2. AZT [Suspect]
     Indication: DRUG USE FOR UNKNOWN INDICATION
     Dates: start: 20071126, end: 20071126
  3. REYATAZ [Concomitant]
     Dosage: 400MG PER DAY
     Dates: start: 20070519
  4. NORVIR [Concomitant]
     Dosage: 100MG PER DAY
     Dates: start: 20070519
  5. TENOFOVIR DISOPROXIL FUMARATE [Concomitant]
     Dosage: 300MG PER DAY
     Dates: start: 20070519

REACTIONS (2)
  - CONGENITAL ANOMALY [None]
  - DRUG EXPOSURE DURING PREGNANCY [None]
